FAERS Safety Report 16302883 (Version 1)
Quarter: 2019Q2

REPORT INFORMATION
  Report Type: Spontaneous
  Country: NL (occurrence: NL)
  Receive Date: 20190513
  Receipt Date: 20190513
  Transmission Date: 20190711
  Serious: Yes (Hospitalization)
  Sender: FDA-Public Use
  Company Number: NL-ROCHE-2314383

PATIENT
  Sex: Female
  Weight: 53 kg

DRUGS (2)
  1. TECENTRIQ [Suspect]
     Active Substance: ATEZOLIZUMAB
     Indication: LUNG NEOPLASM MALIGNANT
     Route: 042
     Dates: start: 201901
  2. PARACETAMOL [Concomitant]
     Active Substance: ACETAMINOPHEN
     Indication: PAIN

REACTIONS (6)
  - Skin discolouration [Unknown]
  - Hypertension [Unknown]
  - Diarrhoea [Unknown]
  - Pain [Unknown]
  - Heart rate increased [Unknown]
  - Dry mouth [Unknown]
